FAERS Safety Report 22312044 (Version 2)
Quarter: 2023Q4

REPORT INFORMATION
  Report Type: Spontaneous
  Country: US (occurrence: US)
  Receive Date: 20230512
  Receipt Date: 20231205
  Transmission Date: 20240109
  Serious: Yes (Other)
  Sender: FDA-Public Use
  Company Number: US-CELLTRION INC.-2023US009738

PATIENT

DRUGS (1)
  1. RITUXIMAB [Suspect]
     Active Substance: RITUXIMAB
     Indication: Granulomatosis with polyangiitis
     Dosage: MAINTENANCE DOSE OF RITUXIMAB 13 MONTHS PRIOR TO TRANSPLANT

REACTIONS (4)
  - Polyarthritis [Recovered/Resolved]
  - Hypogammaglobulinaemia [Recovered/Resolved]
  - Ureaplasma infection [Recovered/Resolved]
  - Therapeutic product effect prolonged [Recovered/Resolved]
